FAERS Safety Report 21247042 (Version 9)
Quarter: 2024Q1

REPORT INFORMATION
  Report Type: Report from Study
  Country: US (occurrence: US)
  Receive Date: 20220824
  Receipt Date: 20240120
  Transmission Date: 20240410
  Serious: No
  Sender: FDA-Public Use
  Company Number: US-NOVARTISTESTPH-NVSC2022US188646

PATIENT
  Age: 14 Year
  Sex: Female

DRUGS (6)
  1. ILARIS [Suspect]
     Active Substance: CANAKINUMAB
     Indication: Cryopyrin associated periodic syndrome
     Dosage: 150 MG, QMO
     Route: 058
     Dates: start: 20220417
  2. ILARIS [Suspect]
     Active Substance: CANAKINUMAB
     Dosage: 150 MG, EVERY 8 WEEKS
     Route: 058
     Dates: start: 20220418
  3. ILARIS [Suspect]
     Active Substance: CANAKINUMAB
     Dosage: 150 MG, EVERY 8 WEEKS
     Route: 058
  4. ILARIS [Suspect]
     Active Substance: CANAKINUMAB
     Dosage: 150 MG, EVERY 8 WEEKS
     Route: 058
     Dates: start: 20230115
  5. ILARIS [Suspect]
     Active Substance: CANAKINUMAB
     Dosage: 150 MG, Q4W
     Route: 065
  6. ILARIS [Suspect]
     Active Substance: CANAKINUMAB
     Dosage: 150 MG, QMO
     Route: 058
     Dates: start: 20220418

REACTIONS (11)
  - Illness [Unknown]
  - Gastroenteritis viral [Recovered/Resolved]
  - Influenza [Recovered/Resolved]
  - Gastroenteritis viral [Recovering/Resolving]
  - Oropharyngeal pain [Recovered/Resolved]
  - Nasal congestion [Recovered/Resolved]
  - Pyrexia [Recovered/Resolved]
  - Ear pain [Not Recovered/Not Resolved]
  - COVID-19 [Unknown]
  - Oropharyngeal pain [Unknown]
  - Malaise [Unknown]

NARRATIVE: CASE EVENT DATE: 20220805
